FAERS Safety Report 25222716 (Version 1)
Quarter: 2025Q2

REPORT INFORMATION
  Report Type: Spontaneous
  Country: US (occurrence: US)
  Receive Date: 20250422
  Receipt Date: 20250422
  Transmission Date: 20250717
  Serious: No
  Sender: JOHNSON AND JOHNSON
  Company Number: US-JNJFOC-20250344619

PATIENT
  Age: 15 Year
  Sex: Male

DRUGS (2)
  1. RISPERDAL [Suspect]
     Active Substance: RISPERIDONE
     Indication: Impulsive behaviour
     Dosage: 0.5 MG AT MORNING AND 1 MG BEDTIME
     Route: 048
     Dates: start: 20050413
  2. RISPERDAL [Suspect]
     Active Substance: RISPERIDONE
     Dosage: 0.5 MG AT MORNING 8 AM, 0.5 MG AT NOON AND AND 1 MG BEDTIME
     Route: 048
     Dates: start: 20050420

REACTIONS (1)
  - Off label use [Unknown]

NARRATIVE: CASE EVENT DATE: 20050420
